FAERS Safety Report 16688697 (Version 1)
Quarter: 2019Q4

REPORT INFORMATION
  Report Type: Spontaneous
  Country: US (occurrence: US)
  Receive Date: 20190809
  Receipt Date: 20190809
  Transmission Date: 20200122
  Serious: No
  Sender: FDA-Public Use
  Company Number: None

PATIENT
  Age: 75 Year
  Sex: Male
  Weight: 81.9 kg

DRUGS (9)
  1. CENTRUM SILVER [Concomitant]
     Active Substance: MINERALS\VITAMINS
  2. CARVEDILOL. [Concomitant]
     Active Substance: CARVEDILOL
  3. FUROSEMIDE. [Concomitant]
     Active Substance: FUROSEMIDE
  4. COENZYME Q10 [Concomitant]
     Active Substance: UBIDECARENONE
  5. ATORVASTATIN [Concomitant]
     Active Substance: ATORVASTATIN
  6. LISINOPRIL. [Concomitant]
     Active Substance: LISINOPRIL
  7. WARFARIN [Concomitant]
     Active Substance: WARFARIN
  8. ASPIRIN. [Concomitant]
     Active Substance: ASPIRIN
  9. WARFARIN SODIUM. [Suspect]
     Active Substance: WARFARIN SODIUM
     Indication: ATRIAL FIBRILLATION
     Dosage: ?          QUANTITY:90 TABLET(S);?
     Route: 048
     Dates: start: 20170301, end: 20190808

REACTIONS (7)
  - Respiratory tract congestion [None]
  - Product contamination [None]
  - Manufacturing process control procedure issue [None]
  - Pyrexia [None]
  - Gynaecomastia [None]
  - Hot flush [None]
  - Night sweats [None]

NARRATIVE: CASE EVENT DATE: 20190730
